FAERS Safety Report 4297218-8 (Version None)
Quarter: 2004Q1

REPORT INFORMATION
  Report Type: 
  Country: None (occurrence: None)
  Receive Date: 20040218
  Receipt Date: 20030328
  Transmission Date: 20041129
  Serious: Yes (Hospitalization)
  Sender: FDA-Public Use
  Company Number: PHHO2003NO04156

PATIENT
  Age: 49 Year
  Sex: Male

DRUGS (4)
  1. IMUREL [Suspect]
     Indication: RENAL TRANSPLANT
     Dosage: 50 MG, QD
     Route: 048
     Dates: start: 19920101
  2. LESCOL [Suspect]
     Indication: RENAL TRANSPLANT
     Dosage: 80 MG, QD
     Route: 048
     Dates: start: 20021002
  3. NEORAL [Suspect]
     Indication: RENAL TRANSPLANT
     Dosage: 100 MG, BID
     Route: 048
     Dates: start: 19921115
  4. PREDNISOLONE [Suspect]
     Indication: RENAL TRANSPLANT
     Dosage: 5 MG, QD
     Route: 048
     Dates: start: 19921115

REACTIONS (2)
  - GRAFT LOSS [None]
  - PNEUMONIA [None]
